FAERS Safety Report 6289985-9 (Version None)
Quarter: 2009Q3

REPORT INFORMATION
  Report Type: 
  Country: None (occurrence: None)
  Receive Date: 20090730
  Receipt Date: 20081015
  Transmission Date: 20100115
  Serious: No
  Sender: FDA-Public Use
  Company Number: US-BRISTOL-MYERS SQUIBB COMPANY-14371173

PATIENT
  Age: 78 Year
  Sex: Female
  Weight: 82 kg

DRUGS (5)
  1. COUMADIN [Suspect]
     Indication: PULMONARY EMBOLISM
     Dosage: STARTED 3 1/2YEARS AGO.
  2. WARFARIN SODIUM [Suspect]
  3. HYDROCHLOROTHIAZIDE [Concomitant]
  4. METOPROLOL TARTRATE [Concomitant]
  5. AMLODIPINE [Concomitant]

REACTIONS (3)
  - INTERNATIONAL NORMALISED RATIO FLUCTUATION [None]
  - RASH [None]
  - VERTIGO POSITIONAL [None]
